FAERS Safety Report 4989933-5 (Version None)
Quarter: 2006Q2

REPORT INFORMATION
  Report Type: 
  Country: None (occurrence: None)
  Receive Date: 20060427
  Receipt Date: 20060412
  Transmission Date: 20061013
  Serious: Yes (Other)
  Sender: FDA-Public Use
  Company Number: A-CH2006-11628

PATIENT
  Age: 12 Month
  Sex: Female

DRUGS (4)
  1. TRACLEER [Suspect]
     Indication: PULMONARY HYPERTENSION
     Dosage: 12 MG; 6 MG BID, ORAL
     Route: 048
     Dates: start: 20050601
  2. SILDENAFIL CITRATE [Concomitant]
  3. FUROSEMIDE [Concomitant]
  4. SPIRONOLACTONE [Concomitant]

REACTIONS (3)
  - HAEMOGLOBIN INCREASED [None]
  - PETECHIAE [None]
  - PLATELET COUNT DECREASED [None]
